FAERS Safety Report 7670803-9 (Version None)
Quarter: 2011Q3

REPORT INFORMATION
  Report Type: 
  Country: None (occurrence: None)
  Receive Date: 20110809
  Receipt Date: 20110728
  Transmission Date: 20111222
  Serious: Yes (Other)
  Sender: FDA-Public Use
  Company Number: RU-JNJFOC-20101105121

PATIENT
  Age: 60 Year
  Sex: Female
  Weight: 65 kg

DRUGS (6)
  1. DICLOFENAC SODIUM [Concomitant]
     Route: 048
     Dates: start: 20100101
  2. SIMPONI [Suspect]
     Indication: RHEUMATOID ARTHRITIS
     Route: 058
     Dates: start: 20100713, end: 20101005
  3. BECLAZONE [Concomitant]
     Route: 048
     Dates: start: 20100501
  4. FOLIC ACID [Concomitant]
     Route: 048
     Dates: start: 20040101
  5. METHOTREXATE [Suspect]
     Indication: RHEUMATOID ARTHRITIS
     Route: 048
     Dates: start: 20100201
  6. OMEPRAZOLE [Concomitant]
     Route: 048
     Dates: start: 20100101

REACTIONS (1)
  - BASAL CELL CARCINOMA [None]
